FAERS Safety Report 6200727-5 (Version None)
Quarter: 2009Q2

REPORT INFORMATION
  Report Type: 
  Country: None (occurrence: None)
  Receive Date: 20090522
  Receipt Date: 20090520
  Transmission Date: 20091009
  Serious: Yes (Death)
  Sender: FDA-Public Use
  Company Number: US-ASTRAZENECA-2009UW12474

PATIENT
  Age: 76 Year
  Sex: Female

DRUGS (1)
  1. SEROQUEL [Suspect]
     Indication: SCHIZOPHRENIA
     Dosage: 100 MG TO 400 MG
     Route: 048
     Dates: start: 20000101, end: 20080616

REACTIONS (2)
  - DEATH [None]
  - TYPE 1 DIABETES MELLITUS [None]
